FAERS Safety Report 5763579-3 (Version None)
Quarter: 2008Q2

REPORT INFORMATION
  Report Type: 
  Country: None (occurrence: None)
  Receive Date: 20080610
  Receipt Date: 20080602
  Transmission Date: 20081010
  Serious: Yes (Other)
  Sender: FDA-Public Use
  Company Number: PHHY2008JP08664

PATIENT
  Age: 80 Year
  Sex: Female

DRUGS (5)
  1. DIOVAN [Suspect]
     Indication: HYPERTENSION
     Dosage: UNK
     Route: 048
     Dates: start: 20080308, end: 20080330
  2. MERCAZOLE [Suspect]
     Dosage: UNK
     Route: 048
     Dates: start: 20080308, end: 20080330
  3. MUCODYNE [Suspect]
     Dosage: UNK
     Route: 048
     Dates: start: 20080325, end: 20080330
  4. DASEN [Suspect]
     Dosage: UNK
     Route: 048
     Dates: start: 20080325, end: 20080330
  5. ALDACTONE [Concomitant]
     Dosage: UNK
     Route: 048
     Dates: start: 20080308

REACTIONS (5)
  - ANGIOEDEMA [None]
  - LIP SWELLING [None]
  - PURPURA [None]
  - SCAB [None]
  - TONGUE DISORDER [None]
